FAERS Safety Report 5477326-6 (Version None)
Quarter: 2007Q4

REPORT INFORMATION
  Report Type: 
  Country: None (occurrence: None)
  Receive Date: 20071004
  Receipt Date: 20070928
  Transmission Date: 20080405
  Serious: Yes (Life-Threatening)
  Sender: FDA-Public Use
  Company Number: JP-ASTRAZENECA-2007SE03531

PATIENT
  Age: 80 Year
  Sex: Male

DRUGS (17)
  1. CANDESARTAN CILEXETIL [Suspect]
     Indication: HYPERTENSION
     Route: 048
     Dates: start: 20070130, end: 20070604
  2. DASEN [Concomitant]
     Route: 048
     Dates: end: 20070604
  3. QUINAPRIL HCL [Concomitant]
     Route: 048
     Dates: end: 20070604
  4. SLOW-K [Concomitant]
     Route: 048
     Dates: end: 20070604
  5. LASIX [Concomitant]
     Route: 065
     Dates: end: 20070604
  6. ALESION [Concomitant]
     Route: 048
     Dates: end: 20070604
  7. FLUTIDE [Concomitant]
     Route: 055
     Dates: end: 20070604
  8. FLUNASE [Concomitant]
     Route: 045
     Dates: end: 20070604
  9. LEFTOSE [Concomitant]
     Route: 048
     Dates: end: 20070604
  10. ZITHROMAX [Concomitant]
     Route: 048
     Dates: end: 20070604
  11. NEGMIN GARGLE [Concomitant]
     Route: 048
     Dates: end: 20070604
  12. DESYREL [Concomitant]
     Route: 048
     Dates: end: 20070604
  13. MEILAX [Concomitant]
     Route: 048
     Dates: end: 20070604
  14. ROHYPNOL [Concomitant]
     Route: 065
     Dates: end: 20070604
  15. NELBON [Concomitant]
     Route: 048
     Dates: end: 20070604
  16. AMOXAN [Concomitant]
     Route: 048
     Dates: end: 20070604
  17. TECIPUL [Concomitant]
     Route: 048
     Dates: end: 20070604

REACTIONS (1)
  - RHABDOMYOLYSIS [None]
